FAERS Safety Report 5200796-5 (Version None)
Quarter: 2006Q4

REPORT INFORMATION
  Report Type: 
  Country: None (occurrence: None)
  Receive Date: 20061016
  Receipt Date: 20060831
  Transmission Date: 20070319
  Serious: No
  Sender: FDA-Public Use
  Company Number: 2006SP003169

PATIENT
  Age: 31 Year
  Sex: Male
  Weight: 191.8715 kg

DRUGS (5)
  1. LUNESTA [Suspect]
     Indication: INSOMNIA
     Dosage: 3 MG;1X;ORAL
     Route: 048
     Dates: start: 20060830, end: 20060830
  2. PROZAC [Concomitant]
  3. PIOGLITAZONE [Concomitant]
  4. HYDROCHLORIDE [Concomitant]
  5. ALLOPURINOL SODIUM [Concomitant]

REACTIONS (1)
  - DYSGEUSIA [None]
